FAERS Safety Report 11021248 (Version 3)
Quarter: 2016Q4

REPORT INFORMATION
  Report Type: Spontaneous
  Country: IE (occurrence: IE)
  Receive Date: 20150413
  Receipt Date: 20161025
  Transmission Date: 20170206
  Serious: Yes (Death, Hospitalization)
  Sender: FDA-Public Use
  Company Number: IE-PFIZER INC-2015121780

PATIENT
  Age: 68 Year
  Sex: Male

DRUGS (8)
  1. PANTOPRAZOLE [Concomitant]
     Active Substance: PANTOPRAZOLE SODIUM
  2. ARCOXIA [Concomitant]
     Active Substance: ETORICOXIB
     Dosage: 60 MG, UNK
  3. SUTENT [Suspect]
     Active Substance: SUNITINIB MALATE
     Indication: PHAEOCHROMOCYTOMA
     Dosage: 50 MG, CYCLIC (4 WEEKS ON, 2 WEEKS OFF)
     Dates: start: 20150320, end: 20150403
  4. ZOMETA [Concomitant]
     Active Substance: ZOLEDRONIC ACID
     Dosage: 4 MG, UNK
  5. DURAGESIC [Concomitant]
     Active Substance: FENTANYL
  6. FRUSEMIDE /00032601/ [Concomitant]
     Active Substance: FUROSEMIDE
  7. OXYCONTIN [Concomitant]
     Active Substance: OXYCODONE HYDROCHLORIDE
  8. BURINEX [Concomitant]
     Active Substance: BUMETANIDE

REACTIONS (3)
  - Death [Fatal]
  - Neoplasm progression [Unknown]
  - Limb injury [Unknown]
